FAERS Safety Report 16728397 (Version 1)
Quarter: 2019Q3

REPORT INFORMATION
  Report Type: Spontaneous
  Country: DE (occurrence: DE)
  Receive Date: 20190822
  Receipt Date: 20190822
  Transmission Date: 20191005
  Serious: Yes (Hospitalization, Other)
  Sender: FDA-Public Use
  Company Number: DE-TEVA-2019-DE-1094698

PATIENT
  Age: 75 Year
  Sex: Male

DRUGS (9)
  1. ALLOPURINOL. [Concomitant]
     Active Substance: ALLOPURINOL
     Dosage: 300 MG, 0-0-1-0
  2. TILIDIN/NALOXON [Suspect]
     Active Substance: NALOXONE HYDROCHLORIDE\TILIDINE HYDROCHLORIDE
     Dosage: 504 MG, 1-0-1-0
  3. DABIGATRAN [Concomitant]
     Active Substance: DABIGATRAN
     Dosage: 110 MG, 1-0-1-0
  4. INSULIN GLARGIN [Concomitant]
     Active Substance: INSULIN GLARGINE
     Dosage: 20 IE, 0-0-0-1
  5. PANTOPRAZOL [Concomitant]
     Active Substance: PANTOPRAZOLE SODIUM
     Dosage: 40 MG, 1-0-0-0
  6. METOPROLOL. [Suspect]
     Active Substance: METOPROLOL
     Dosage: 95 MG, 1-0-1-0
  7. INSULIN (HUMAN) [Concomitant]
     Active Substance: INSULIN HUMAN
  8. TAMSULOSIN [Concomitant]
     Active Substance: TAMSULOSIN
     Dosage: 0.4 MG, 0-0-1-0
  9. DIGITOXIN [Concomitant]
     Active Substance: DIGITOXIN
     Dosage: 0.07 MG, 1-0-0-0

REACTIONS (7)
  - Hypotension [Unknown]
  - Fatigue [Unknown]
  - Nausea [Unknown]
  - Fall [Unknown]
  - Syncope [Unknown]
  - Cough [Unknown]
  - Productive cough [Unknown]
